FAERS Safety Report 7034568-6 (Version None)
Quarter: 2010Q4

REPORT INFORMATION
  Report Type: 
  Country: None (occurrence: None)
  Receive Date: 20101008
  Receipt Date: 20101001
  Transmission Date: 20110411
  Serious: Yes (Hospitalization, Other)
  Sender: FDA-Public Use
  Company Number: PT-BRISTOL-MYERS SQUIBB COMPANY-15182124

PATIENT
  Age: 42 Year
  Sex: Male

DRUGS (3)
  1. EFAVIRENZ [Suspect]
     Indication: HIV INFECTION
     Route: 048
     Dates: start: 20080201, end: 20080501
  2. COMBIVIR [Suspect]
     Dates: start: 20080201
  3. SULFAMETHOXAZOLE AND TRIMETHOPRIM [Concomitant]

REACTIONS (3)
  - HALLUCINATION [None]
  - LYMPHOCYTE COUNT DECREASED [None]
  - SLEEP DISORDER [None]
